FAERS Safety Report 7476536-6 (Version None)
Quarter: 2011Q2

REPORT INFORMATION
  Report Type: 
  Country: None (occurrence: None)
  Receive Date: 20110512
  Receipt Date: 20110504
  Transmission Date: 20111010
  Serious: Yes (Hospitalization, Other)
  Sender: FDA-Public Use
  Company Number: CHPA2011US06293

PATIENT
  Sex: Male
  Weight: 124.72 kg

DRUGS (2)
  1. PREVACID 24 HR [Suspect]
     Dosage: 15 MG, QD
     Route: 048
     Dates: start: 20090101, end: 20100101
  2. PREVACID 24 HR [Suspect]
     Indication: GASTROOESOPHAGEAL REFLUX DISEASE
     Dosage: 15 MG, QD
     Route: 048
     Dates: start: 20100101

REACTIONS (7)
  - OFF LABEL USE [None]
  - INFECTION [None]
  - ABDOMINAL PAIN UPPER [None]
  - WEIGHT DECREASED [None]
  - DIVERTICULITIS [None]
  - VOMITING [None]
  - INCORRECT DRUG ADMINISTRATION DURATION [None]
